FAERS Safety Report 18588326 (Version 1)
Quarter: 2020Q4

REPORT INFORMATION
  Report Type: Spontaneous
  Country: US (occurrence: US)
  Receive Date: 20201207
  Receipt Date: 20201207
  Transmission Date: 20210114
  Serious: No
  Sender: FDA-Public Use
  Company Number: US-JUBILANT CADISTA PHARMACEUTICALS-2020JUB00262

PATIENT
  Age: 56 Year
  Sex: Female

DRUGS (8)
  1. METHYLPREDNISOLONE. [Suspect]
     Active Substance: METHYLPREDNISOLONE
     Indication: COUGH
     Dosage: 12 MG, 2X/DAY
     Route: 048
     Dates: start: 20200806, end: 20200806
  2. METHYLPREDNISOLONE. [Suspect]
     Active Substance: METHYLPREDNISOLONE
     Indication: SINUS DISORDER
     Dosage: 4 MG, 1X/DAY
     Route: 048
     Dates: start: 20200808, end: 20200808
  3. METHYLPREDNISOLONE. [Suspect]
     Active Substance: METHYLPREDNISOLONE
     Indication: INFLAMMATION
     Dosage: 20 MG, 1X/DAY
     Route: 048
     Dates: start: 20200807, end: 20200807
  4. VITAMIN D [Concomitant]
     Active Substance: VITAMIN D NOS
  5. SYNTHROID [Concomitant]
     Active Substance: LEVOTHYROXINE SODIUM
  6. BLACK COHOSH [Concomitant]
     Active Substance: BLACK COHOSH
  7. METHYLPREDNISOLONE. [Suspect]
     Active Substance: METHYLPREDNISOLONE
     Indication: PHARYNGITIS
  8. BIOTIN [Concomitant]
     Active Substance: BIOTIN

REACTIONS (3)
  - Fat tissue increased [Unknown]
  - Urticaria [Not Recovered/Not Resolved]
  - Product quality issue [Unknown]

NARRATIVE: CASE EVENT DATE: 202008
